FAERS Safety Report 6637716-2 (Version None)
Quarter: 2010Q1

REPORT INFORMATION
  Report Type: 
  Country: None (occurrence: None)
  Receive Date: 20100312
  Receipt Date: 20100301
  Transmission Date: 20100710
  Serious: Yes (Hospitalization)
  Sender: FDA-Public Use
  Company Number: 238132K09USA

PATIENT
  Age: 36 Year
  Sex: Female

DRUGS (4)
  1. REBIF [Suspect]
     Indication: MULTIPLE SCLEROSIS
     Dosage: 8.8 MG, 3 IN 1 WEEKS; 22 MCG, 3 IN 1 WEEKS, SUBCUTANEOUS  MULTIPLE SCLEROSIS
     Route: 058
     Dates: start: 20090705, end: 20090719
  2. REBIF [Suspect]
     Indication: MULTIPLE SCLEROSIS
     Dosage: 8.8 MG, 3 IN 1 WEEKS; 22 MCG, 3 IN 1 WEEKS, SUBCUTANEOUS  MULTIPLE SCLEROSIS
     Route: 058
     Dates: start: 20090720, end: 20090722
  3. TYLENOL ARTHRITIS (PARACETAMOL) [Concomitant]
  4. MOTRIN [Concomitant]

REACTIONS (11)
  - BALANCE DISORDER [None]
  - CONDITION AGGRAVATED [None]
  - DIZZINESS [None]
  - EYE MOVEMENT DISORDER [None]
  - EYE PAIN [None]
  - HEADACHE [None]
  - HYPERACUSIS [None]
  - MULTIPLE SCLEROSIS [None]
  - NAUSEA [None]
  - PHOTOPHOBIA [None]
  - VISUAL IMPAIRMENT [None]
